FAERS Safety Report 22176977 (Version 6)
Quarter: 2024Q2

REPORT INFORMATION
  Report Type: Spontaneous
  Country: US (occurrence: US)
  Receive Date: 20230405
  Receipt Date: 20240426
  Transmission Date: 20240715
  Serious: No
  Sender: FDA-Public Use
  Company Number: US-PFIZER INC-PV202300062079

PATIENT
  Age: 64 Year
  Sex: Female

DRUGS (1)
  1. XELJANZ XR [Suspect]
     Active Substance: TOFACITINIB CITRATE
     Dosage: 11 MG
     Dates: start: 20230401

REACTIONS (9)
  - Pain [Not Recovered/Not Resolved]
  - Gait disturbance [Unknown]
  - Ligament sprain [Unknown]
  - Fall [Unknown]
  - Asthma [Unknown]
  - Dyspnoea [Unknown]
  - Inflammation [Unknown]
  - Psoriasis [Not Recovered/Not Resolved]
  - Drug ineffective [Unknown]

NARRATIVE: CASE EVENT DATE: 20230401
